FAERS Safety Report 5079858-1 (Version None)
Quarter: 2006Q3

REPORT INFORMATION
  Report Type: 
  Country: None (occurrence: None)
  Receive Date: 20060815
  Receipt Date: 20060809
  Transmission Date: 20061208
  Serious: Yes (Other)
  Sender: FDA-Public Use
  Company Number: PHBS2006JP11958

PATIENT

DRUGS (2)
  1. TEGRETOL [Suspect]
     Route: 048
  2. PHENYTOIN [Concomitant]
     Route: 065

REACTIONS (1)
  - ANAEMIA MEGALOBLASTIC [None]
